FAERS Safety Report 25648452 (Version 2)
Quarter: 2025Q4

REPORT INFORMATION
  Report Type: Report from Study
  Country: TH (occurrence: TH)
  Receive Date: 20250806
  Receipt Date: 20251029
  Transmission Date: 20260118
  Serious: Yes (Hospitalization, Other)
  Sender: ROCHE
  Company Number: TH-ROCHE-10000354069

PATIENT
  Age: 65 Year
  Sex: Male

DRUGS (2)
  1. TECENTRIQ [Suspect]
     Active Substance: ATEZOLIZUMAB
     Indication: Non-small cell lung cancer
     Route: 042
  2. AVASTIN [Suspect]
     Active Substance: BEVACIZUMAB
     Indication: Non-small cell lung cancer
     Route: 065

REACTIONS (2)
  - Chest pain [Unknown]
  - Appendicectomy [Unknown]

NARRATIVE: CASE EVENT DATE: 20251016
